FAERS Safety Report 19386888 (Version 1)
Quarter: 2021Q2

REPORT INFORMATION
  Report Type: Spontaneous
  Country: US (occurrence: US)
  Receive Date: 20210606
  Receipt Date: 20210606
  Transmission Date: 20210717
  Serious: No
  Sender: FDA-Public Use
  Company Number: None

PATIENT
  Age: 24 Year
  Sex: Female
  Weight: 70.2 kg

DRUGS (1)
  1. NATUREL CREAM [CLOBETASOL PROPIONATE] [Suspect]
     Active Substance: CLOBETASOL PROPIONATE
     Indication: ECZEMA
     Route: 061
     Dates: start: 20210301, end: 20210601

REACTIONS (2)
  - Condition aggravated [None]
  - Skin injury [None]

NARRATIVE: CASE EVENT DATE: 20210501
